FAERS Safety Report 24097723 (Version 1)
Quarter: 2024Q3

REPORT INFORMATION
  Report Type: Spontaneous
  Country: IT (occurrence: IT)
  Receive Date: 20240716
  Receipt Date: 20240716
  Transmission Date: 20241016
  Serious: Yes (Hospitalization, Other)
  Sender: MERCK
  Company Number: IT-009507513-2407ITA005580

PATIENT
  Age: 54 Year
  Sex: Female
  Weight: 52 kg

DRUGS (4)
  1. PEMBROLIZUMAB [Suspect]
     Active Substance: PEMBROLIZUMAB
     Dosage: 200 MILLIGRAM, Q3W
     Route: 042
     Dates: start: 20240327, end: 20240530
  2. PACLITAXEL [Concomitant]
     Active Substance: PACLITAXEL
     Dosage: 80 MILLIGRAM/SQ. METER, QW
     Route: 042
     Dates: start: 20240327, end: 20240530
  3. CARBOPLATIN [Concomitant]
     Active Substance: CARBOPLATIN
     Dosage: AREA UNDER THE CURVE 1.5 ON A WEEKLY SCHEDULE
     Route: 042
     Dates: start: 20240327, end: 20240530
  4. LEVOTHYROXINE [Concomitant]
     Active Substance: LEVOTHYROXINE\LEVOTHYROXINE SODIUM
     Dosage: 75 MICROGRAM, QD
     Route: 048

REACTIONS (2)
  - Neutropenia [Recovering/Resolving]
  - Cholangitis acute [Recovering/Resolving]

NARRATIVE: CASE EVENT DATE: 20240606
